FAERS Safety Report 8344443 (Version 3)
Quarter: 2013Q4

REPORT INFORMATION
  Report Type: Report from Study
  Country: IN (occurrence: IN)
  Receive Date: 20120119
  Receipt Date: 20131216
  Transmission Date: 20140711
  Serious: Yes (Hospitalization)
  Sender: FDA-Public Use
  Company Number: PHHO2012IN000761

PATIENT
  Sex: 0

DRUGS (10)
  1. RANIBIZUMAB [Suspect]
     Indication: MYOPIA
     Dosage: 0.5 MG, UNK
     Route: 031
     Dates: start: 20110415, end: 20110415
  2. RANIBIZUMAB [Suspect]
     Dosage: 0.5 MG, UNK
     Route: 031
     Dates: start: 20110416, end: 20110416
  3. RANIBIZUMAB [Suspect]
     Dosage: 0.5 MG, UNK
     Dates: start: 20110519, end: 20110519
  4. ACETYLSALICYLIC ACID [Suspect]
     Indication: MYOCARDIAL ISCHAEMIA
     Route: 048
     Dates: start: 19910502
  5. ISOSORBIDE DINITRATE [Concomitant]
     Indication: MYOCARDIAL ISCHAEMIA
     Dosage: 3 TIMES DAY
     Route: 048
     Dates: start: 19910502
  6. METOPROLOL [Concomitant]
     Indication: HYPERTENSION
     Dosage: ONCE A DAY
     Route: 048
     Dates: start: 20110201
  7. TELMISARTAN [Concomitant]
     Indication: HYPERTENSION
     Dosage: ONCE A DAY
     Route: 048
     Dates: start: 20110201
  8. ALPRAZOLAM [Concomitant]
     Indication: ANXIETY
     Dosage: ONCE A DAY
     Route: 048
     Dates: start: 19910502
  9. LEVOCETIRIZINE [Concomitant]
     Indication: PRURITUS
     Dosage: ONCE A DAY
     Route: 048
     Dates: start: 20110201
  10. ROSUVASTATIN [Concomitant]
     Indication: HYPERCHOLESTEROLAEMIA
     Dosage: ONCE A DAY
     Route: 048
     Dates: start: 20110201

REACTIONS (1)
  - Subdural haematoma [Recovered/Resolved]
